FAERS Safety Report 6789148-4 (Version None)
Quarter: 2010Q2

REPORT INFORMATION
  Report Type: 
  Country: None (occurrence: None)
  Receive Date: 20100623
  Receipt Date: 20080701
  Transmission Date: 20101027
  Serious: No
  Sender: FDA-Public Use
  Company Number: US-PFIZER INC-2008055166

PATIENT
  Sex: Female
  Weight: 62.272 kg

DRUGS (2)
  1. GENOTROPIN [Suspect]
     Dates: start: 20070101
  2. BYETTA [Concomitant]
     Indication: DIABETES MELLITUS
     Dates: start: 20070101

REACTIONS (2)
  - HEADACHE [None]
  - WEIGHT DECREASED [None]
